FAERS Safety Report 25148383 (Version 3)
Quarter: 2025Q4

REPORT INFORMATION
  Report Type: Spontaneous
  Country: US (occurrence: US)
  Receive Date: 20250402
  Receipt Date: 20251013
  Transmission Date: 20260117
  Serious: Yes (Other)
  Sender: BRISTOL-MYERS SQUIBB COMPANY
  Company Number: US-BRISTOL-MYERS SQUIBB COMPANY-2025-045609

PATIENT
  Age: 63 Year
  Sex: Male

DRUGS (2)
  1. REVLIMID [Suspect]
     Active Substance: LENALIDOMIDE
     Indication: Plasma cell myeloma
     Dosage: QOD
  2. REVLIMID [Suspect]
     Active Substance: LENALIDOMIDE
     Dosage: QD 21 ON 7 OFF

REACTIONS (2)
  - Renal impairment [Unknown]
  - Electrolyte imbalance [Unknown]
